FAERS Safety Report 5774482-7 (Version None)
Quarter: 2008Q2

REPORT INFORMATION
  Report Type: 
  Country: None (occurrence: None)
  Receive Date: 20080616
  Receipt Date: 20080520
  Transmission Date: 20081010
  Serious: Yes (Other)
  Sender: FDA-Public Use
  Company Number: US-BOEHRINGER INGELHEIM GMBH, GERMANY-2008-BP-08090VE

PATIENT

DRUGS (2)
  1. DIPYRIDAMOLE [Suspect]
     Indication: CARDIAC STRESS TEST
     Route: 042
  2. MYOVIEW [Concomitant]
     Indication: CARDIAC STRESS TEST

REACTIONS (3)
  - BRADYCARDIA [None]
  - CARDIAC ARREST [None]
  - SINUS TACHYCARDIA [None]
